FAERS Safety Report 10073727 (Version 1)
Quarter: 2014Q2

REPORT INFORMATION
  Report Type: Report from Study
  Country: US (occurrence: US)
  Receive Date: 20140411
  Receipt Date: 20140411
  Transmission Date: 20141212
  Serious: Yes (Other)
  Sender: FDA-Public Use
  Company Number: US-ABBVIE-14P-163-1222326-00

PATIENT
  Age: 64 Year
  Sex: Female

DRUGS (2)
  1. HUMIRA [Suspect]
     Indication: RHEUMATOID ARTHRITIS
     Dates: start: 200808, end: 2013
  2. CORICIDIN [Concomitant]
     Indication: NASOPHARYNGITIS
     Route: 048

REACTIONS (8)
  - Osteoarthritis [Unknown]
  - Cerebrovascular accident [Unknown]
  - Cholelithiasis [Recovered/Resolved]
  - Shoulder operation [Unknown]
  - Limb operation [Unknown]
  - Medical device implantation [Unknown]
  - Arthralgia [Unknown]
  - Arthralgia [Recovering/Resolving]
